FAERS Safety Report 9464360 (Version 1)
Quarter: 2013Q3

REPORT INFORMATION
  Report Type: Spontaneous
  Country: US (occurrence: US)
  Receive Date: 20130819
  Receipt Date: 20130819
  Transmission Date: 20140515
  Serious: Yes (Other)
  Sender: FDA-Public Use
  Company Number: US-PFIZER INC-2013237515

PATIENT
  Age: 41 Year
  Sex: Male
  Weight: 95 kg

DRUGS (2)
  1. VISTARIL [Suspect]
     Indication: ANXIETY
     Dosage: 50 MG, 2X/DAY
     Route: 048
     Dates: start: 199411
  2. VISTARIL [Suspect]
     Dosage: 50 MG, 2X/DAY
     Route: 048
     Dates: start: 201306

REACTIONS (8)
  - Hepatic cirrhosis [Unknown]
  - Psoriasis [Unknown]
  - Fluid retention [Unknown]
  - Weight decreased [Unknown]
  - Feeling abnormal [Unknown]
  - Personality disorder [Unknown]
  - Anxiety [Unknown]
  - Ammonia increased [Unknown]
